FAERS Safety Report 24401546 (Version 1)
Quarter: 2024Q4

REPORT INFORMATION
  Report Type: Spontaneous
  Country: US (occurrence: US)
  Receive Date: 20241007
  Receipt Date: 20241007
  Transmission Date: 20250115
  Serious: No
  Sender: BIOLINERX
  Company Number: US-MIMS-BIOLMC-619

PATIENT
  Sex: Male

DRUGS (1)
  1. APHEXDA [Suspect]
     Active Substance: MOTIXAFORTIDE ACETATE
     Indication: Product used for unknown indication
     Dosage: UNK, UNK
     Route: 065

REACTIONS (1)
  - Injection site pain [Unknown]
